FAERS Safety Report 7563373-7 (Version None)
Quarter: 2011Q2

REPORT INFORMATION
  Report Type: 
  Country: None (occurrence: None)
  Receive Date: 20110622
  Receipt Date: 20110615
  Transmission Date: 20111010
  Serious: Yes (Other)
  Sender: FDA-Public Use
  Company Number: A0931623A

PATIENT
  Age: 72 Year
  Sex: Female

DRUGS (4)
  1. BLOOD TRANSFUSION [Concomitant]
  2. CONTRAST MEDIA [Suspect]
     Route: 065
  3. AVANDIA [Suspect]
     Route: 048
  4. ANTIHYPERTENSIVE [Concomitant]

REACTIONS (1)
  - RENAL FAILURE ACUTE [None]
